FAERS Safety Report 6870549-0 (Version None)
Quarter: 2010Q3

REPORT INFORMATION
  Report Type: 
  Country: None (occurrence: None)
  Receive Date: 20100723
  Receipt Date: 20100712
  Transmission Date: 20110219
  Serious: Yes (Hospitalization, Other)
  Sender: FDA-Public Use
  Company Number: CA-JNJFOC-20100704403

PATIENT
  Sex: Female
  Weight: 55 kg

DRUGS (7)
  1. INFLIXIMAB, RECOMBINANT [Suspect]
     Indication: CROHN'S DISEASE
     Route: 042
  2. ASPIRIN [Concomitant]
     Route: 048
  3. LIPITOR [Concomitant]
     Route: 048
  4. PLAVIX [Concomitant]
     Route: 048
  5. METOPROLOL [Concomitant]
     Route: 048
  6. PANTOPRAZOLE [Concomitant]
  7. MORPHINE [Concomitant]

REACTIONS (1)
  - MYOCARDIAL INFARCTION [None]
